FAERS Safety Report 17850892 (Version 1)
Quarter: 2020Q2

REPORT INFORMATION
  Report Type: Spontaneous
  Country: US (occurrence: US)
  Receive Date: 20200602
  Receipt Date: 20200602
  Transmission Date: 20200714
  Serious: Yes (Death)
  Sender: FDA-Public Use
  Company Number: None

PATIENT
  Age: 68 Year
  Sex: Male
  Weight: 77.1 kg

DRUGS (4)
  1. REMDESIVIR. [Suspect]
     Active Substance: REMDESIVIR
     Indication: COVID-19
     Route: 051
     Dates: start: 20200521, end: 20200528
  2. VANCOMYCIN [Concomitant]
     Active Substance: VANCOMYCIN
     Dates: start: 20200521, end: 20200523
  3. MEROPENEM. [Concomitant]
     Active Substance: MEROPENEM
     Dates: start: 20200522, end: 20200528
  4. ZOSYN [Concomitant]
     Active Substance: PIPERACILLIN SODIUM\TAZOBACTAM SODIUM
     Dates: start: 20200519, end: 20200522

REACTIONS (1)
  - Medical observation [None]

NARRATIVE: CASE EVENT DATE: 20200602
